FAERS Safety Report 14923048 (Version 1)
Quarter: 2018Q2

REPORT INFORMATION
  Report Type: Spontaneous
  Country: US (occurrence: US)
  Receive Date: 20180503
  Receipt Date: 20180503
  Transmission Date: 20180711
  Serious: Yes (Other)
  Sender: FDA-Public Use
  Company Number: None

PATIENT
  Age: 34 Year
  Sex: Female
  Weight: 117 kg

DRUGS (4)
  1. FINACEA FOAM [Suspect]
     Active Substance: AZELAIC ACID
     Indication: ROSACEA
     Dosage: ?          QUANTITY:1 SAMPLE;?
     Route: 061
     Dates: start: 20180503, end: 20180503
  2. VITAMIN C [Concomitant]
     Active Substance: ASCORBIC ACID
  3. CYMBLTA [Concomitant]
  4. WOMEN^S ONE A DAY [Concomitant]
     Active Substance: VITAMINS

REACTIONS (5)
  - Application site pain [None]
  - Application site pruritus [None]
  - Burning sensation [None]
  - Pruritus [None]
  - Erythema [None]

NARRATIVE: CASE EVENT DATE: 20180503
